FAERS Safety Report 6362552-4 (Version None)
Quarter: 2009Q3

REPORT INFORMATION
  Report Type: 
  Country: None (occurrence: None)
  Receive Date: 20090918
  Receipt Date: 20090601
  Transmission Date: 20100115
  Serious: No
  Sender: FDA-Public Use
  Company Number: US-ABBOTT-09P-163-0578159-00

PATIENT
  Sex: Male
  Weight: 92.162 kg

DRUGS (5)
  1. HUMIRA [Suspect]
     Indication: ANKYLOSING SPONDYLITIS
     Route: 058
     Dates: start: 20090415
  2. CELEXA [Concomitant]
     Indication: DEPRESSION
  3. TRAMADOL HCL [Concomitant]
     Indication: PAIN
  4. TRAMADOL HCL [Concomitant]
     Indication: ANKYLOSING SPONDYLITIS
  5. LEVOTHYROXINE SODIUM [Concomitant]
     Indication: HYPOTHYROIDISM

REACTIONS (5)
  - BACK PAIN [None]
  - CHEST PAIN [None]
  - EYE PAIN [None]
  - MUSCULOSKELETAL CHEST PAIN [None]
  - PAIN IN EXTREMITY [None]
